FAERS Safety Report 7338621-9 (Version None)
Quarter: 2011Q1

REPORT INFORMATION
  Report Type: 
  Country: None (occurrence: None)
  Receive Date: 20110210
  Receipt Date: 20101111
  Transmission Date: 20110831
  Serious: No
  Sender: FDA-Public Use
  Company Number: 1000016908

PATIENT
  Age: 25 Year
  Sex: Female

DRUGS (7)
  1. KLONOPIN (CLONAZEPAM) (CLONAZEPAM) [Concomitant]
  2. BIRTH CONTROL PILLS (NOS) (BIRTH CONTROL PILLS (NOS)) (BIRTH CONTROL P [Concomitant]
  3. SAVELLA [Suspect]
     Indication: FIBROMYALGIA
     Dosage: 12.5 MG (12.5 MG, 1 IN 1 D), ORAL, 25 MG (25 MG, 1 IN 1 D), ORAL, 50 MG (50 MG, 1 IN 1 D), ORAL
     Route: 048
     Dates: start: 20101018, end: 20101022
  4. SAVELLA [Suspect]
     Indication: FIBROMYALGIA
     Dosage: 12.5 MG (12.5 MG, 1 IN 1 D), ORAL, 25 MG (25 MG, 1 IN 1 D), ORAL, 50 MG (50 MG, 1 IN 1 D), ORAL
     Route: 048
     Dates: start: 20101031
  5. SAVELLA [Suspect]
     Indication: FIBROMYALGIA
     Dosage: 12.5 MG (12.5 MG, 1 IN 1 D), ORAL, 25 MG (25 MG, 1 IN 1 D), ORAL, 50 MG (50 MG, 1 IN 1 D), ORAL
     Route: 048
     Dates: start: 20101023, end: 20101030
  6. PENTASA (MESALAZINE) (MESALAZINE) [Concomitant]
  7. MULTIVITAMINS (MULTIVITAMINS) (MULTIVITAMINS) [Concomitant]

REACTIONS (3)
  - NAUSEA [None]
  - DIZZINESS [None]
  - VOMITING [None]
